FAERS Safety Report 10385440 (Version 1)
Quarter: 2014Q1

REPORT INFORMATION
  Report Type: Spontaneous
  Country: US (occurrence: None)
  Receive Date: 20140306
  Receipt Date: 20140306
  Transmission Date: 20141002
  Serious: Yes (Other)
  Sender: FDA-Public Use
  Company Number: 163-21880-13054155

PATIENT
  Age: 79 Year
  Sex: Male
  Weight: 79.83 kg

DRUGS (5)
  1. REVLIMID (LENALIDOMIDE) (10 MILLIGRAM, CAPSULES) [Suspect]
     Indication: PLASMA CELL MYELOMA
     Route: 048
     Dates: start: 201108
  2. KEPPRA (LEVETIRACETAM) [Concomitant]
  3. SIMVASTATIN [Concomitant]
  4. PAMIDRONATE (PAMIDRONATE DISODIUM) [Concomitant]
  5. DEXAMETHASONE [Concomitant]

REACTIONS (10)
  - Paraproteinaemia [None]
  - Blood immunoglobulin G increased [None]
  - Platelet count decreased [None]
  - Neutrophil count decreased [None]
  - White blood cell count decreased [None]
  - Contusion [None]
  - Thrombocytopenia [None]
  - Neutropenia [None]
  - Contusion [None]
  - Malaise [None]
